FAERS Safety Report 7086589-5 (Version None)
Quarter: 2010Q4

REPORT INFORMATION
  Report Type: 
  Country: None (occurrence: None)
  Receive Date: 20101105
  Receipt Date: 20101028
  Transmission Date: 20110411
  Serious: Yes (Death, Other)
  Sender: FDA-Public Use
  Company Number: PHEH2006US15105

PATIENT
  Sex: Male
  Weight: 96.145 kg

DRUGS (35)
  1. ZOMETA [Suspect]
     Indication: PROSTATE CANCER
     Dosage: 4 MG, QMO
     Dates: start: 20041004
  2. ZOMETA [Suspect]
     Indication: METASTASES TO BONE
  3. VIVELLE [Concomitant]
     Route: 062
  4. TAXOTERE [Concomitant]
     Indication: PROSTATE CANCER
     Dosage: 30 MG/M2, WEEKLY FOR THREE TO FOUR WEEKS
  5. KETOCONAZOLE [Concomitant]
     Indication: PROSTATE CANCER
  6. PAXIL [Concomitant]
     Dosage: 60 MG, QD
  7. VIAGRA [Concomitant]
     Dosage: UNK, AS NEEDED
  8. HYDROMORPHONE HCL [Concomitant]
     Dosage: UNK, AS NEEDED
  9. ZANTAC [Concomitant]
     Dosage: 150 MG, QD
     Route: 048
  10. PREDNISONE [Concomitant]
     Dosage: 5 MG, BID
  11. MEGACE [Concomitant]
     Dosage: 40 CC, QD
     Route: 048
  12. MS CONTIN [Concomitant]
  13. ZYPREXA [Concomitant]
     Dosage: 2.5 MG, QD
  14. EFFEXOR [Concomitant]
     Dosage: 1 DF, QD
  15. IBUPROFEN [Concomitant]
     Dosage: 1800 MG, QD
  16. LOVENOX [Concomitant]
     Dosage: 60 MG, QD
  17. LUPRON [Concomitant]
  18. DULCOLAX [Concomitant]
  19. COLACE [Concomitant]
  20. METHADONE [Concomitant]
  21. LORAZEPAM [Concomitant]
  22. HYOSCYAMINE [Concomitant]
  23. PROCHLORPERAZINE [Concomitant]
  24. HALOPERIDOL [Concomitant]
  25. ATIVAN [Concomitant]
  26. ACETAMINOPHEN [Concomitant]
  27. TRAMADOL HCL [Concomitant]
  28. OXYCODONE [Concomitant]
  29. OMEPRAZOLE [Concomitant]
  30. OXYGEN [Concomitant]
  31. PENICILLIN VK [Concomitant]
  32. DEXAMETHASONE [Concomitant]
     Dosage: 4 MG, QW2
  33. FENTANYL [Concomitant]
  34. PERIOGARD [Concomitant]
  35. CHLORHEXIDINE GLUCONATE [Concomitant]

REACTIONS (32)
  - ANAEMIA [None]
  - ANXIETY [None]
  - ARTHRALGIA [None]
  - BLOOD OESTROGEN INCREASED [None]
  - BONE DEBRIDEMENT [None]
  - BONE DISORDER [None]
  - DEATH [None]
  - DECREASED INTEREST [None]
  - DEPRESSION [None]
  - EMOTIONAL DISTRESS [None]
  - GENERAL PHYSICAL HEALTH DETERIORATION [None]
  - GINGIVAL DISORDER [None]
  - HALLUCINATION, VISUAL [None]
  - IMPAIRED HEALING [None]
  - JAW DISORDER [None]
  - MALIGNANT NEOPLASM PROGRESSION [None]
  - METASTASES TO BONE [None]
  - MITRAL VALVE INCOMPETENCE [None]
  - MYALGIA [None]
  - ORAL PAIN [None]
  - OSTEOARTHRITIS [None]
  - OSTEONECROSIS OF JAW [None]
  - OSTEOSCLEROSIS [None]
  - PAIN [None]
  - PAIN IN JAW [None]
  - PROSTATIC SPECIFIC ANTIGEN INCREASED [None]
  - SOMNOLENCE [None]
  - TENDERNESS [None]
  - TOOTH DISORDER [None]
  - TOOTH EXTRACTION [None]
  - TOOTH INFECTION [None]
  - TOOTHACHE [None]
